FAERS Safety Report 10076287 (Version 1)
Quarter: 2014Q2

REPORT INFORMATION
  Report Type: Spontaneous
  Country: IT (occurrence: IT)
  Receive Date: 20140414
  Receipt Date: 20140414
  Transmission Date: 20141212
  Serious: Yes (Other)
  Sender: FDA-Public Use
  Company Number: IT-WATSON-2014-06961

PATIENT
  Age: 4 Year
  Sex: Male

DRUGS (3)
  1. CYCLOSPORINE (UNKNOWN) [Suspect]
     Indication: HISTIOCYTOSIS HAEMATOPHAGIC
     Dosage: UNKNOWN
     Route: 065
  2. ETANERCEPT [Suspect]
     Indication: HISTIOCYTOSIS HAEMATOPHAGIC
     Dosage: 0.8 MG/KG, 1/WEEK
     Route: 065
  3. ACYCLOVIR                          /00587301/ [Concomitant]
     Indication: VARICELLA
     Dosage: UNKNOWN
     Route: 048

REACTIONS (1)
  - Necrotising fasciitis [Unknown]
